FAERS Safety Report 8976946 (Version 1)
Quarter: 2012Q4

REPORT INFORMATION
  Report Type: 
  Country: US (occurrence: US)
  Receive Date: 20121220
  Receipt Date: 20121220
  Transmission Date: 20130627
  Serious: Yes (Hospitalization)
  Sender: FDA-Public Use
  Company Number: US-BAYER-2012-131445

PATIENT
  Age: 47 Year
  Sex: Female

DRUGS (5)
  1. YASMIN [Suspect]
  2. YAZ [Suspect]
  3. CIPROFLOXACIN [Concomitant]
     Dosage: 500 mg, UNK
  4. LASIX [Concomitant]
  5. ZOMIG [Concomitant]
     Indication: HEADACHE

REACTIONS (2)
  - Pulmonary embolism [None]
  - Deep vein thrombosis [None]
